FAERS Safety Report 6570154-X (Version None)
Quarter: 2010Q1

REPORT INFORMATION
  Report Type: 
  Country: None (occurrence: None)
  Receive Date: 20100202
  Receipt Date: 20100202
  Transmission Date: 20100710
  Serious: No
  Sender: FDA-Public Use
  Company Number: None

PATIENT
  Sex: Female
  Weight: 53.978 kg

DRUGS (1)
  1. MONISTAT 7 [Suspect]
     Indication: FUNGAL INFECTION
     Dosage: USED 2 APPLICATORS 2 DAYS, 1 PER DAY
     Dates: start: 20080201, end: 20080202

REACTIONS (3)
  - DYSPAREUNIA [None]
  - PRODUCT QUALITY ISSUE [None]
  - VULVOVAGINAL PAIN [None]
